FAERS Safety Report 5691265-7 (Version None)
Quarter: 2008Q2

REPORT INFORMATION
  Report Type: 
  Country: None (occurrence: None)
  Receive Date: 20080402
  Receipt Date: 20080321
  Transmission Date: 20081010
  Serious: Yes (Hospitalization)
  Sender: FDA-Public Use
  Company Number: US-JNJFOC-20080206482

PATIENT
  Sex: Male
  Weight: 83.92 kg

DRUGS (5)
  1. DURAGESIC-100 [Suspect]
     Indication: PAIN
     Route: 062
  2. KLONOPIN [Concomitant]
     Indication: MUSCLE RELAXANT THERAPY
     Route: 048
  3. LYRICA [Concomitant]
     Indication: NEURALGIA
     Route: 048
  4. LOMITIL [Concomitant]
     Indication: DIARRHOEA
     Route: 048
  5. NORCO [Concomitant]
     Indication: PAIN
     Dosage: 10/325MG
     Route: 048

REACTIONS (7)
  - DYSURIA [None]
  - FATIGUE [None]
  - GASTROINTESTINAL DISORDER [None]
  - INAPPROPRIATE SCHEDULE OF DRUG ADMINISTRATION [None]
  - PERITONITIS [None]
  - SEPSIS [None]
  - URINE ANALYSIS ABNORMAL [None]
